FAERS Safety Report 11341703 (Version 1)
Quarter: 2015Q3

REPORT INFORMATION
  Report Type: Spontaneous
  Country: US (occurrence: US)
  Receive Date: 20150805
  Receipt Date: 20150805
  Transmission Date: 20151125
  Serious: Yes (Hospitalization, Other)
  Sender: FDA-Public Use
  Company Number: US-BRISTOL-MYERS SQUIBB COMPANY-BMS-2015-050126

PATIENT
  Age: 65 Year
  Sex: Female

DRUGS (1)
  1. ELIQUIS [Suspect]
     Active Substance: APIXABAN
     Indication: ARTERIOVENOUS MALFORMATION
     Dosage: 5 MG, BID
     Route: 048

REACTIONS (2)
  - Gastrointestinal arteriovenous malformation [Unknown]
  - Gastrointestinal haemorrhage [Unknown]
